FAERS Safety Report 25045724 (Version 1)
Quarter: 2025Q1

REPORT INFORMATION
  Report Type: Report from Study
  Country: CA (occurrence: CA)
  Receive Date: 20250306
  Receipt Date: 20250306
  Transmission Date: 20250409
  Serious: Yes (Hospitalization)
  Sender: TAKEDA
  Company Number: CA-TAKEDA-2025TUS022070

PATIENT
  Sex: Female

DRUGS (7)
  1. VEDOLIZUMAB [Suspect]
     Active Substance: VEDOLIZUMAB
     Indication: Crohn^s disease
  2. STELARA [Concomitant]
     Active Substance: USTEKINUMAB
  3. CLOZAPINE [Concomitant]
     Active Substance: CLOZAPINE
  4. SENOKOT [Concomitant]
     Active Substance: SENNOSIDES
  5. Colis [Concomitant]
  6. LEVOTHROID [Concomitant]
     Active Substance: LEVOTHYROXINE SODIUM
  7. LOSEC [Concomitant]
     Active Substance: OMEPRAZOLE

REACTIONS (1)
  - Fall [Recovering/Resolving]
